FAERS Safety Report 6302964-8 (Version None)
Quarter: 2009Q3

REPORT INFORMATION
  Report Type: 
  Country: None (occurrence: None)
  Receive Date: 20090810
  Receipt Date: 20090803
  Transmission Date: 20100115
  Serious: Yes (Hospitalization)
  Sender: FDA-Public Use
  Company Number: B0587762A

PATIENT
  Sex: Female

DRUGS (4)
  1. LANOXIN [Suspect]
     Indication: DRUG USE FOR UNKNOWN INDICATION
     Dosage: .125MG PER DAY
     Route: 048
     Dates: start: 20080725, end: 20090725
  2. ACETYLSALICYLIC ACID [Concomitant]
     Route: 065
  3. LASITONE [Concomitant]
     Route: 048
  4. ISOPTIN [Concomitant]
     Route: 065

REACTIONS (5)
  - CARDIOACTIVE DRUG LEVEL INCREASED [None]
  - DECREASED APPETITE [None]
  - NAUSEA [None]
  - THERAPEUTIC AGENT TOXICITY [None]
  - VOMITING [None]
